FAERS Safety Report 11279483 (Version 2)
Quarter: 2015Q3

REPORT INFORMATION
  Report Type: Spontaneous
  Country: US (occurrence: US)
  Receive Date: 20150717
  Receipt Date: 20150901
  Transmission Date: 20151125
  Serious: Yes (Other)
  Sender: FDA-Public Use
  Company Number: CHPA2015US008518

PATIENT
  Age: 78 Year
  Sex: Male

DRUGS (1)
  1. DESENEX (MICONAZOLE NITRATE) [Suspect]
     Active Substance: MICONAZOLE NITRATE
     Indication: MILIARIA
     Dosage: EVERY DAY SINCE 20 YEARS, QD
     Route: 061

REACTIONS (5)
  - Product use issue [Unknown]
  - Incorrect drug administration duration [Unknown]
  - Dermatitis allergic [Unknown]
  - Rheumatoid arthritis [Unknown]
  - Angiopathy [Unknown]
